FAERS Safety Report 10227569 (Version 1)
Quarter: 2014Q2

REPORT INFORMATION
  Report Type: Report from Study
  Country: DE (occurrence: DE)
  Receive Date: 20140610
  Receipt Date: 20140610
  Transmission Date: 20141212
  Serious: Yes (Congenital Anomaly)
  Sender: FDA-Public Use
  Company Number: DE-BAYER-2014-081292

PATIENT
  Sex: 0

DRUGS (4)
  1. MOXIFLOXACIN ORAL [Suspect]
     Dosage: 400 MG, UNK
     Route: 064
  2. MOXIFLOXACIN ORAL [Suspect]
     Dosage: 400 MG, UNK
     Route: 064
  3. MYRTOL [Concomitant]
  4. MYRTOL [Concomitant]

REACTIONS (3)
  - Arnold-Chiari malformation [None]
  - Meningomyelocele [None]
  - Exposure during pregnancy [None]
